FAERS Safety Report 6348781-4 (Version None)
Quarter: 2009Q3

REPORT INFORMATION
  Report Type: 
  Country: None (occurrence: None)
  Receive Date: 20090911
  Receipt Date: 20090828
  Transmission Date: 20100115
  Serious: Yes (Hospitalization)
  Sender: FDA-Public Use
  Company Number: ES-BRISTOL-MYERS SQUIBB COMPANY-14773147

PATIENT
  Age: 56 Year
  Sex: Female
  Weight: 69 kg

DRUGS (3)
  1. CETUXIMAB [Suspect]
     Indication: NON-SMALL CELL LUNG CANCER
     Dosage: LAST DOSE: 24AUG09
     Route: 042
     Dates: start: 20090713
  2. CISPLATIN [Suspect]
     Indication: NON-SMALL CELL LUNG CANCER
     Dosage: LAST DOSE: 24AUG09 EVERY 21 DAYS
     Route: 042
     Dates: start: 20090713
  3. PEMETREXED DISODIUM [Suspect]
     Indication: NON-SMALL CELL LUNG CANCER
     Dosage: LAST DOSE: 24AUG09 EVERY 21 DAYS
     Route: 042
     Dates: start: 20090713

REACTIONS (1)
  - PULMONARY EMBOLISM [None]
